FAERS Safety Report 6622495-5 (Version None)
Quarter: 2010Q1

REPORT INFORMATION
  Report Type: 
  Country: None (occurrence: None)
  Receive Date: 20100310
  Receipt Date: 20100201
  Transmission Date: 20100710
  Serious: No
  Sender: FDA-Public Use
  Company Number: US-BIOGENIDEC-2010BI003583

PATIENT
  Sex: Female

DRUGS (2)
  1. AVONEX [Suspect]
     Indication: MULTIPLE SCLEROSIS
     Route: 030
     Dates: start: 19991226, end: 20090713
  2. AVONEX [Suspect]
     Route: 030
     Dates: start: 20090916, end: 20090930

REACTIONS (4)
  - BALANCE DISORDER [None]
  - DECREASED APPETITE [None]
  - MEMORY IMPAIRMENT [None]
  - MUSCLE TWITCHING [None]
